FAERS Safety Report 16513905 (Version 1)
Quarter: 2019Q3

REPORT INFORMATION
  Report Type: Spontaneous
  Country: US (occurrence: US)
  Receive Date: 20190701
  Receipt Date: 20190701
  Transmission Date: 20191004
  Serious: No
  Sender: FDA-Public Use
  Company Number: US-ROCHE-2255178

PATIENT
  Age: 23 Year
  Sex: Female

DRUGS (11)
  1. LACOSAMIDE. [Suspect]
     Active Substance: LACOSAMIDE
     Indication: SEIZURE
     Route: 065
  2. PENTOBARBITAL. [Concomitant]
     Active Substance: PENTOBARBITAL
  3. CANNABIDIOL [Concomitant]
     Active Substance: CANNABIDIOL
  4. LEVETIRACETAM. [Suspect]
     Active Substance: LEVETIRACETAM
     Route: 065
  5. PROPOFOL. [Concomitant]
     Active Substance: PROPOFOL
  6. IVIG [Concomitant]
     Active Substance: HUMAN IMMUNOGLOBULIN G
     Route: 042
  7. LEVETIRACETAM. [Suspect]
     Active Substance: LEVETIRACETAM
     Indication: SEIZURE
     Route: 065
  8. PHENYTOIN. [Suspect]
     Active Substance: PHENYTOIN
     Indication: SEIZURE
     Route: 065
  9. CLONAZEPAM. [Suspect]
     Active Substance: CLONAZEPAM
     Indication: SEIZURE
     Route: 065
  10. TOPIRAMATE. [Suspect]
     Active Substance: TOPIRAMATE
     Indication: SEIZURE
     Route: 065
  11. KETAMINE [Concomitant]
     Active Substance: KETAMINE

REACTIONS (2)
  - Fatigue [Unknown]
  - Drug resistance [Unknown]
